FAERS Safety Report 9415454 (Version 2)
Quarter: 2013Q3

REPORT INFORMATION
  Report Type: Spontaneous
  Country: US (occurrence: US)
  Receive Date: 20130723
  Receipt Date: 20130819
  Transmission Date: 20140515
  Serious: No
  Sender: FDA-Public Use
  Company Number: US-PFIZER INC-2013211419

PATIENT
  Age: 60 Year
  Sex: Female

DRUGS (11)
  1. SUTENT [Suspect]
     Indication: RENAL CANCER
     Dosage: 50 MG, CYCLIC (DAILY 4/6 WEEKS)
     Route: 048
     Dates: start: 20120725
  2. AMLODIPINE [Concomitant]
     Dosage: 10 MG, 1X/DAY
  3. LISINOPRIL [Concomitant]
     Dosage: 30 MG, 1X/DAY
  4. PERCOCET [Concomitant]
     Indication: PAIN
     Dosage: UNK, 2X/DAY
  5. OMEPRAZOLE [Concomitant]
     Dosage: 20 MG, 2X/DAY
  6. VITAMIN D3 [Concomitant]
     Dosage: UNK
  7. CALCIUM WITH VITAMIN D [Concomitant]
     Dosage: UNK, 2X/DAY
  8. FOLIC ACID [Concomitant]
     Dosage: UNK, 2X/DAY
  9. BABY ASPIRIN [Concomitant]
     Dosage: 81 MG, 1X/DAY
  10. SIMVASTATIN [Concomitant]
     Dosage: 40 MG, 1X/DAY
  11. ESTRADIOL [Concomitant]
     Dosage: 0.5 MG, 1X/DAY

REACTIONS (3)
  - Disease progression [Unknown]
  - Renal cancer [Not Recovered/Not Resolved]
  - Discomfort [Unknown]
